FAERS Safety Report 7098384-1 (Version None)
Quarter: 2010Q4

REPORT INFORMATION
  Report Type: 
  Country: None (occurrence: None)
  Receive Date: 20101112
  Receipt Date: 20101104
  Transmission Date: 20110411
  Serious: No
  Sender: FDA-Public Use
  Company Number: US-PFIZER INC-2010140958

PATIENT
  Sex: Female
  Weight: 77.098 kg

DRUGS (2)
  1. XALATAN [Suspect]
     Indication: GLAUCOMA
     Dosage: 1 GTT EACH EYE, 1X/DAY
     Route: 047
     Dates: start: 20091101
  2. TIMOLOL [Concomitant]
     Dosage: UNK

REACTIONS (1)
  - FRUSTRATION [None]
